FAERS Safety Report 5205796-7 (Version None)
Quarter: 2007Q1

REPORT INFORMATION
  Report Type: 
  Country: None (occurrence: None)
  Receive Date: 20070108
  Receipt Date: 20070108
  Transmission Date: 20070707
  Serious: Yes (Life-Threatening)
  Sender: FDA-Public Use
  Company Number: None

PATIENT
  Age: 55 Year
  Sex: Female
  Weight: 55 kg

DRUGS (12)
  1. CYCLOPHOSPHAMIDE [Suspect]
     Indication: LIVER DISORDER
     Dosage: SEE IMAGE
  2. CYCLOPHOSPHAMIDE [Suspect]
     Indication: METASTASES TO BONE
     Dosage: SEE IMAGE
  3. CYCLOPHOSPHAMIDE [Suspect]
     Indication: NON-SMALL CELL LUNG CANCER STAGE IV
     Dosage: SEE IMAGE
  4. ALLOGENIC LUNG CA/CD40L VACCINE [Suspect]
     Indication: METASTASIS
     Dosage: SEE IMAGE
     Route: 023
  5. ALLOGENIC LUNG CA/CD40L VACCINE [Suspect]
     Indication: NON-SMALL CELL LUNG CANCER STAGE IV
     Dosage: SEE IMAGE
     Route: 023
  6. ATRA (ALL TRANS RETINOIC ACID) [Suspect]
     Indication: METASTASIS
     Dosage: SEE IMAGE
     Route: 048
  7. ADVIL [Concomitant]
  8. COMPAZINE [Concomitant]
  9. M.V.I. [Concomitant]
  10. ALOE VERA POWDER [Concomitant]
  11. VICODIN [Concomitant]
  12. MULTI-VITAMIN INFUSION [Concomitant]

REACTIONS (6)
  - CHEST PAIN [None]
  - DISEASE PROGRESSION [None]
  - FACE OEDEMA [None]
  - JUGULAR VEIN DISTENSION [None]
  - PNEUMONIA [None]
  - SUPERIOR VENA CAVAL OCCLUSION [None]
